FAERS Safety Report 10713784 (Version 1)
Quarter: 2015Q1

REPORT INFORMATION
  Report Type: Spontaneous
  Country: US (occurrence: US)
  Receive Date: 20150115
  Receipt Date: 20150115
  Transmission Date: 20150721
  Serious: No
  Sender: FDA-Public Use
  Company Number: US-PFIZER INC-2015016943

PATIENT
  Age: 51 Year
  Sex: Male
  Weight: 79 kg

DRUGS (1)
  1. CHANTIX [Suspect]
     Active Substance: VARENICLINE TARTRATE
     Dosage: UNK

REACTIONS (4)
  - Depression [Unknown]
  - Irritability [Unknown]
  - Poor quality sleep [Unknown]
  - Malaise [Unknown]
